FAERS Safety Report 10843975 (Version 1)
Quarter: 2015Q1

REPORT INFORMATION
  Report Type: Report from Study
  Country: GB (occurrence: GB)
  Receive Date: 20150220
  Receipt Date: 20150220
  Transmission Date: 20150721
  Serious: Yes (Death, Other)
  Sender: FDA-Public Use
  Company Number: GB-BAYER-2015-021795

PATIENT
  Age: 36 Year
  Sex: Female

DRUGS (1)
  1. YASMIN [Suspect]
     Active Substance: DROSPIRENONE\ETHINYL ESTRADIOL
     Indication: CONTRACEPTION
     Dosage: UNK
     Dates: start: 2008

REACTIONS (8)
  - Pulmonary thrombosis [Fatal]
  - Dyspnoea [Recovering/Resolving]
  - Thrombosis [None]
  - Deep vein thrombosis [Fatal]
  - Pneumonia [Recovering/Resolving]
  - Cough [Recovering/Resolving]
  - Syncope [Fatal]
  - Chest pain [Recovering/Resolving]

NARRATIVE: CASE EVENT DATE: 201305
